FAERS Safety Report 12609589 (Version 1)
Quarter: 2016Q3

REPORT INFORMATION
  Report Type: Spontaneous
  Country: US (occurrence: None)
  Receive Date: 20160729
  Receipt Date: 20160729
  Transmission Date: 20161109
  Serious: No
  Sender: FDA-Public Use
  Company Number: None

PATIENT
  Age: 61 Year
  Sex: Female

DRUGS (11)
  1. NEXIUM [Concomitant]
     Active Substance: ESOMEPRAZOLE MAGNESIUM
  2. PROBIOTICS [Concomitant]
     Active Substance: PROBIOTICS NOS
  3. ESTROGEN PROGESTERONE [Concomitant]
  4. MACROBID AND PYRIDIUM [Concomitant]
  5. VIBERZI [Suspect]
     Active Substance: ELUXADOLINE
     Indication: IRRITABLE BOWEL SYNDROME
     Route: 048
     Dates: start: 20160727, end: 20160728
  6. MOBIC [Concomitant]
     Active Substance: MELOXICAM
  7. DIFLUCAN [Concomitant]
     Active Substance: FLUCONAZOLE
  8. CORTISOL REPLACEMENT [Concomitant]
  9. NYSTATIN. [Concomitant]
     Active Substance: NYSTATIN
  10. NASOCORT [Concomitant]
     Active Substance: BUDESONIDE
  11. COMPOUNDED THYROID MEDICINE [Concomitant]

REACTIONS (13)
  - Anxiety [None]
  - Flushing [None]
  - Middle insomnia [None]
  - Feeling abnormal [None]
  - Feeling hot [None]
  - Urine output increased [None]
  - Rash [None]
  - Nausea [None]
  - Dehydration [None]
  - Headache [None]
  - Abdominal pain upper [None]
  - Abdominal distension [None]
  - Eructation [None]

NARRATIVE: CASE EVENT DATE: 20160727
